FAERS Safety Report 25678735 (Version 1)
Quarter: 2025Q3

REPORT INFORMATION
  Report Type: Spontaneous
  Country: JP (occurrence: JP)
  Receive Date: 20250814
  Receipt Date: 20250814
  Transmission Date: 20251020
  Serious: Yes (Hospitalization, Other)
  Sender: AMGEN
  Company Number: JP-AMGEN-JPNSP2025157852

PATIENT
  Age: 63 Year
  Sex: Female

DRUGS (6)
  1. FILGRASTIM [Suspect]
     Active Substance: FILGRASTIM
     Indication: Neutropenia
     Route: 065
  2. CEFTRIAXONE [Concomitant]
     Active Substance: CEFTRIAXONE
     Dosage: 2 GRAM, QD (TAPERED BY DAY 14)
     Route: 065
  3. PERAMIVIR [Concomitant]
     Active Substance: PERAMIVIR
     Route: 065
  4. PREDNISOLONE [Concomitant]
     Active Substance: PREDNISOLONE
     Indication: Acute respiratory distress syndrome
     Dosage: 2 MILLIGRAM/KILOGRAM, QD
     Route: 065
  5. Immunoglobulin [Concomitant]
     Indication: Hypogammaglobulinaemia
     Dosage: 5 GRAM, QD (FOR 3 DAYS)
     Route: 065
  6. NOREPINEPHRINE BITARTRATE [Concomitant]
     Active Substance: NOREPINEPHRINE BITARTRATE
     Route: 065

REACTIONS (2)
  - Lung abscess [Unknown]
  - Pleural effusion [Unknown]
